FAERS Safety Report 25139603 (Version 2)
Quarter: 2025Q2

REPORT INFORMATION
  Report Type: Spontaneous
  Country: FI (occurrence: FI)
  Receive Date: 20250331
  Receipt Date: 20250429
  Transmission Date: 20250716
  Serious: Yes (Other)
  Sender: AUROBINDO
  Company Number: FI-AUROBINDO-AUR-APL-2025-015595

PATIENT
  Sex: Female

DRUGS (1)
  1. ROSUVASTATIN [Suspect]
     Active Substance: ROSUVASTATIN
     Indication: Blood cholesterol
     Route: 065

REACTIONS (9)
  - Seizure [Unknown]
  - Product odour abnormal [Recovered/Resolved]
  - Chills [Recovered/Resolved]
  - Hypoaesthesia [Recovered/Resolved]
  - Blood pressure increased [Recovered/Resolved]
  - Paraesthesia [Recovered/Resolved]
  - Skin burning sensation [Unknown]
  - Anxiety [Unknown]
  - Discomfort [Unknown]
